FAERS Safety Report 11867687 (Version 2)
Quarter: 2016Q1

REPORT INFORMATION
  Report Type: Spontaneous
  Country: US (occurrence: US)
  Receive Date: 20151224
  Receipt Date: 20160204
  Transmission Date: 20160526
  Serious: Yes (Hospitalization)
  Sender: FDA-Public Use
  Company Number: US-JNJFOC-20151217283

PATIENT
  Sex: Female

DRUGS (1)
  1. XARELTO [Suspect]
     Active Substance: RIVAROXABAN
     Indication: PRODUCT USED FOR UNKNOWN INDICATION
     Route: 048
     Dates: start: 2015

REACTIONS (8)
  - Internal haemorrhage [Recovered/Resolved]
  - Tremor [Unknown]
  - Dysstasia [Unknown]
  - General physical health deterioration [Unknown]
  - Blood blister [Recovered/Resolved]
  - Abasia [Unknown]
  - Hypothyroidism [Unknown]
  - Asthenia [Unknown]

NARRATIVE: CASE EVENT DATE: 2015
